FAERS Safety Report 18006236 (Version 1)
Quarter: 2020Q3

REPORT INFORMATION
  Report Type: Spontaneous
  Country: US (occurrence: US)
  Receive Date: 20200710
  Receipt Date: 20200710
  Transmission Date: 20201103
  Serious: No
  Sender: FDA-Public Use
  Company Number: US-009507513-2007USA003319

PATIENT
  Age: 11 Year
  Sex: Male

DRUGS (2)
  1. TEMODAR [Suspect]
     Active Substance: TEMOZOLOMIDE
     Indication: CUTANEOUS T-CELL LYMPHOMA
     Dosage: 150 MILLIGRAM/SQ. METER, QD X 5 DAYS (28 DAY CYCLES)
  2. VALPROIC ACID. [Concomitant]
     Active Substance: VALPROIC ACID
     Indication: CUTANEOUS T-CELL LYMPHOMA
     Dosage: 15 MILLIGRAM/KILOGRAM, QD

REACTIONS (1)
  - Off label use [Unknown]
